FAERS Safety Report 9224140 (Version 1)
Quarter: 2013Q2

REPORT INFORMATION
  Report Type: Spontaneous
  Country: US (occurrence: None)
  Receive Date: 20130409
  Receipt Date: 20130409
  Transmission Date: 20140414
  Serious: No
  Sender: FDA-Public Use
  Company Number: None

PATIENT
  Sex: 0

DRUGS (1)
  1. SYNTHROID [Suspect]

REACTIONS (7)
  - Fatigue [None]
  - Feeling abnormal [None]
  - Arthralgia [None]
  - Myalgia [None]
  - Anxiety [None]
  - Irritability [None]
  - Depression [None]
